FAERS Safety Report 9526176 (Version 1)
Quarter: 2013Q3

REPORT INFORMATION
  Report Type: Spontaneous
  Country: US (occurrence: US)
  Receive Date: 20130916
  Receipt Date: 20130916
  Transmission Date: 20140515
  Serious: No
  Sender: FDA-Public Use
  Company Number: US-TEVA-432046USA

PATIENT
  Age: 35 Year
  Sex: Female
  Weight: 88.08 kg

DRUGS (2)
  1. PARAGARD 380A [Suspect]
     Indication: CONTRACEPTION
     Route: 015
     Dates: start: 200912, end: 20120604
  2. CYMBALTA [Concomitant]

REACTIONS (1)
  - Device expulsion [Recovered/Resolved]
